FAERS Safety Report 4447249-X (Version None)
Quarter: 2004Q3

REPORT INFORMATION
  Report Type: 
  Country: None (occurrence: None)
  Receive Date: 20040908
  Receipt Date: 20040908
  Transmission Date: 20050211
  Serious: Yes (Hospitalization)
  Sender: FDA-Public Use
  Company Number: None

PATIENT
  Age: 74 Year
  Sex: Male

DRUGS (9)
  1. WARFARIN SODIUM [Suspect]
     Indication: CARDIAC VALVE DISEASE
     Dosage: 5 MG QD
     Dates: start: 20040119
  2. FOSINOPRIL SODIUM [Suspect]
     Indication: HYPERTENSION
     Dosage: 20 MG QD
     Dates: start: 20040406
  3. IRBESARTAN [Suspect]
     Indication: HYPERTENSION
     Dosage: 30 MG QD
     Dates: start: 20031108
  4. RANITIDINE [Concomitant]
  5. ATENOLOL [Concomitant]
  6. NIFEDIPINE [Concomitant]
  7. DIGOXIN [Concomitant]
  8. PROPAFENONE HYDROCHLORIDE [Concomitant]
  9. SIMVASTATIN [Concomitant]

REACTIONS (2)
  - MELAENA [None]
  - RENAL FAILURE ACUTE [None]
